FAERS Safety Report 5356114-5 (Version None)
Quarter: 2007Q2

REPORT INFORMATION
  Report Type: 
  Country: None (occurrence: None)
  Receive Date: 20070524
  Receipt Date: 20070116
  Transmission Date: 20071010
  Serious: Yes (Death)
  Sender: FDA-Public Use
  Company Number: T200700089

PATIENT
  Age: 24 Year
  Sex: Male

DRUGS (6)
  1. METHADOSE [Suspect]
     Indication: DRUG DEPENDENCE
     Dosage: QD
  2. METHADOSE [Suspect]
     Indication: DRUG REHABILITATION
     Dosage: QD
  3. DOLOPHINE HCL [Suspect]
     Indication: DRUG DEPENDENCE
     Dosage: QD
  4. DOLOPHINE HCL [Suspect]
     Indication: DRUG REHABILITATION
     Dosage: QD
  5. HYDROCODONE                   (HYDROCODONE) [Concomitant]
  6. ZOLOFT [Concomitant]

REACTIONS (1)
  - DEATH [None]
